FAERS Safety Report 4276543-0 (Version None)
Quarter: 2004Q1

REPORT INFORMATION
  Report Type: 
  Country: None (occurrence: None)
  Receive Date: 20040120
  Receipt Date: 20040108
  Transmission Date: 20041129
  Serious: Yes (Hospitalization, Other)
  Sender: FDA-Public Use
  Company Number: 2003118754

PATIENT
  Age: 51 Year
  Sex: Female
  Weight: 60.782 kg

DRUGS (4)
  1. NARDIL [Suspect]
     Indication: ANXIETY
     Dosage: 30 MG (BID), ORAL
     Route: 048
  2. CLORAZEPATE DIPOTASSIUM [Concomitant]
  3. FLUTICASONE PROPIONATE [Concomitant]
  4. RANITIDINE [Concomitant]

REACTIONS (7)
  - ANXIETY [None]
  - BREAST NEOPLASM [None]
  - CONDITION AGGRAVATED [None]
  - FEAR [None]
  - MENOPAUSE [None]
  - PANIC REACTION [None]
  - PHARMACEUTICAL PRODUCT COMPLAINT [None]
